FAERS Safety Report 5073523-2 (Version None)
Quarter: 2006Q3

REPORT INFORMATION
  Report Type: 
  Country: None (occurrence: None)
  Receive Date: 20060808
  Receipt Date: 20060725
  Transmission Date: 20061208
  Serious: Yes (Hospitalization, Other)
  Sender: FDA-Public Use
  Company Number: US-AMGEN-US187729

PATIENT
  Sex: Male

DRUGS (10)
  1. PROCRIT [Suspect]
     Indication: RENAL FAILURE CHRONIC
     Route: 058
     Dates: start: 20060717, end: 20060720
  2. PROZAC [Concomitant]
     Route: 065
  3. INSULIN [Concomitant]
     Route: 065
  4. ALDACTONE [Concomitant]
     Route: 065
  5. LASIX [Concomitant]
     Route: 065
  6. PROPRANOLOL [Concomitant]
     Route: 065
  7. GLIPIZIDE [Concomitant]
     Route: 065
  8. IRON SULFATETHIAMIN COMPOUND TAB [Concomitant]
     Route: 065
  9. PREDNISONE [Concomitant]
     Route: 065
  10. VICODIN [Concomitant]
     Route: 065

REACTIONS (1)
  - APLASTIC ANAEMIA [None]
